FAERS Safety Report 9068162 (Version 1)
Quarter: 2013Q1

REPORT INFORMATION
  Report Type: Spontaneous
  Country: US (occurrence: US)
  Receive Date: 20130215
  Receipt Date: 20130215
  Transmission Date: 20140127
  Serious: No
  Sender: FDA-Public Use
  Company Number: US-BIOGENIDEC-2013BI011337

PATIENT
  Age: 32 Year
  Sex: Male

DRUGS (1)
  1. AVONEX [Suspect]
     Indication: MULTIPLE SCLEROSIS
     Route: 030
     Dates: start: 20100112

REACTIONS (5)
  - Injection site bruising [Recovered/Resolved with Sequelae]
  - Injection site reaction [Recovered/Resolved with Sequelae]
  - Injection site pain [Recovered/Resolved with Sequelae]
  - Anxiety [Recovered/Resolved with Sequelae]
  - Drug effect decreased [Recovered/Resolved with Sequelae]
